FAERS Safety Report 8246918-3 (Version None)
Quarter: 2012Q1

REPORT INFORMATION
  Report Type: 
  Country: None (occurrence: None)
  Receive Date: 20120327
  Receipt Date: 20110322
  Transmission Date: 20120608
  Serious: Yes (Hospitalization)
  Sender: FDA-Public Use
  Company Number: GB-022325

PATIENT
  Age: 62 Year
  Sex: Male

DRUGS (5)
  1. VITAMIN B1, PLAIN [Concomitant]
  2. CHLORAMBUCIL [Suspect]
     Indication: CHRONIC LYMPHOCYTIC LEUKAEMIA
     Dosage: 10 MG/M2 AT DAYS 1-7 EVERY 28 DAYS, ORAL
     Route: 048
     Dates: start: 20110308
  3. RAMIPRIL [Concomitant]
  4. SIMVASTATIN [Concomitant]
  5. INSULIN LISPRO [Concomitant]

REACTIONS (4)
  - HEMIPARESIS [None]
  - INTRACRANIAL HAEMATOMA [None]
  - HEADACHE [None]
  - MALAISE [None]
